FAERS Safety Report 7804927-X (Version None)
Quarter: 2011Q4

REPORT INFORMATION
  Report Type: 
  Country: None (occurrence: None)
  Receive Date: 20111010
  Receipt Date: 20110928
  Transmission Date: 20120403
  Serious: Yes (Death)
  Sender: FDA-Public Use
  Company Number: US-MYLANLABS-2009S1010709

PATIENT
  Age: 42 Year
  Sex: Female
  Weight: 70.31 kg

DRUGS (9)
  1. STRATTERA [Concomitant]
     Indication: ATTENTION DEFICIT/HYPERACTIVITY DISORDER
  2. DEXTROAMPHETAMINE [Concomitant]
     Indication: ATTENTION DEFICIT/HYPERACTIVITY DISORDER
  3. CARISOPRODOL [Suspect]
     Dosage: EVERY SIX HOURS
  4. FENTANYL-100 [Suspect]
     Indication: PAIN
     Dosage: CHANGES PATCHES Q2D
     Route: 062
     Dates: end: 20070617
  5. ALPRAZOLAM [Suspect]
     Route: 048
  6. ACTIQ [Suspect]
     Indication: BREAKTHROUGH PAIN
     Dosage: EVERY 12 HOURS
     Route: 048
  7. LYRICA [Concomitant]
  8. PROMETHAZINE [Concomitant]
  9. LUNESTA [Concomitant]

REACTIONS (2)
  - TOXICITY TO VARIOUS AGENTS [None]
  - OVERDOSE [None]
